FAERS Safety Report 18405487 (Version 1)
Quarter: 2020Q4

REPORT INFORMATION
  Report Type: Spontaneous
  Country: FR (occurrence: FR)
  Receive Date: 20201020
  Receipt Date: 20201020
  Transmission Date: 20210114
  Serious: Yes (Hospitalization)
  Sender: FDA-Public Use
  Company Number: FR-PFIZER INC-2020401732

PATIENT
  Age: 51 Year
  Sex: Female
  Weight: 55.5 kg

DRUGS (5)
  1. CORTANCYL [Suspect]
     Active Substance: PREDNISONE
     Dosage: 10 DF, SINGLE
     Route: 048
     Dates: start: 20200912, end: 20200912
  2. PRAZEPAM [Suspect]
     Active Substance: PRAZEPAM
     Dosage: 200 MG, SINGLE
     Route: 048
     Dates: start: 20200912, end: 20200912
  3. IXPRIM [Suspect]
     Active Substance: ACETAMINOPHEN\TRAMADOL HYDROCHLORIDE
     Dosage: 10 DF, SINGLE
     Route: 048
     Dates: start: 20200912, end: 20200912
  4. DULOXETINE HYDROCHLORIDE. [Suspect]
     Active Substance: DULOXETINE HYDROCHLORIDE
     Dosage: 420 MG, SINGLE
     Route: 048
     Dates: start: 20200912, end: 20200912
  5. GABAPENTIN. [Suspect]
     Active Substance: GABAPENTIN
     Dosage: 2.4 G, SINGLE
     Route: 048
     Dates: start: 20200912, end: 20200912

REACTIONS (2)
  - Coma [Recovered/Resolved]
  - Poisoning deliberate [Recovered/Resolved]

NARRATIVE: CASE EVENT DATE: 20200912
